FAERS Safety Report 16593062 (Version 2)
Quarter: 2019Q3

REPORT INFORMATION
  Report Type: Spontaneous
  Country: IT (occurrence: IT)
  Receive Date: 20190718
  Receipt Date: 20190725
  Transmission Date: 20191004
  Serious: Yes (Hospitalization, Other)
  Sender: FDA-Public Use
  Company Number: IT-ASTRAZENECA-2019SF01091

PATIENT
  Age: 73 Year

DRUGS (4)
  1. ENTECAVIR. [Concomitant]
     Active Substance: ENTECAVIR
     Dosage: 0,5 MG 1 TABLET/DAY
  2. PERINDOPRIL ARGININE/INDAPAMIDE [Concomitant]
     Active Substance: INDAPAMIDE\PERINDOPRIL
     Dosage: 10 MG + 2.5 1 TABLET/DAY
  3. NEBIVOLOL. [Concomitant]
     Active Substance: NEBIVOLOL
  4. TAGRISSO [Suspect]
     Active Substance: OSIMERTINIB
     Indication: NON-SMALL CELL LUNG CANCER STAGE IV
     Route: 048
     Dates: end: 20190606

REACTIONS (3)
  - Generalised oedema [Unknown]
  - Malignant neoplasm progression [Unknown]
  - Respiratory failure [Unknown]
